FAERS Safety Report 5514050-5 (Version None)
Quarter: 2007Q4

REPORT INFORMATION
  Report Type: 
  Country: None (occurrence: None)
  Receive Date: 20071109
  Receipt Date: 20071109
  Transmission Date: 20080405
  Serious: Yes (Life-Threatening)
  Sender: FDA-Public Use
  Company Number: None

PATIENT
  Sex: Male
  Weight: 68.3 kg

DRUGS (1)
  1. TRAMADOL HCL [Suspect]
     Indication: MUSCULOSKELETAL PAIN
     Dosage: 100 MG Q6 HOURS PRN PAIN PO
     Route: 048
     Dates: start: 20071103, end: 20071104

REACTIONS (5)
  - ANGIOEDEMA [None]
  - GLOSSODYNIA [None]
  - LIP SWELLING [None]
  - SWOLLEN TONGUE [None]
  - TONGUE DISORDER [None]
